FAERS Safety Report 4527477-5 (Version None)
Quarter: 2004Q4

REPORT INFORMATION
  Report Type: 
  Country: None (occurrence: None)
  Receive Date: 20041123
  Receipt Date: 20040816
  Transmission Date: 20050328
  Serious: Yes (Hospitalization, Other)
  Sender: FDA-Public Use
  Company Number: 2004050982

PATIENT
  Age: 70 Year
  Sex: Male

DRUGS (7)
  1. LIPITOR [Suspect]
     Indication: ACUTE MYOCARDIAL INFARCTION
     Dosage: 80 MG (80 MG, 1IN 1 D), ORAL
     Route: 048
  2. LIPITOR [Suspect]
     Indication: CORONARY ANGIOPLASTY
     Dosage: 80 MG (80 MG, 1IN 1 D), ORAL
     Route: 048
  3. CLOPIDOGREL BISULFATE [Concomitant]
  4. METOPROLOL TARTRATE [Concomitant]
  5. QUINAPRIL HCL [Concomitant]
  6. ASPIRIN [Concomitant]
  7. HYOSCYAMINE (HYOSCYAMINE) [Concomitant]

REACTIONS (1)
  - RHABDOMYOLYSIS [None]
